FAERS Safety Report 7795062-8 (Version None)
Quarter: 2011Q4

REPORT INFORMATION
  Report Type: 
  Country: None (occurrence: None)
  Receive Date: 20111004
  Receipt Date: 20110923
  Transmission Date: 20120403
  Serious: Yes (Hospitalization)
  Sender: FDA-Public Use
  Company Number: US-JNJFOC-20110910297

PATIENT
  Sex: Male
  Weight: 39.5 kg

DRUGS (9)
  1. FERROUS SULFATE TAB [Concomitant]
  2. MULTI-VITAMINS [Concomitant]
  3. INFLIXIMAB, RECOMBINANT [Suspect]
     Indication: CROHN'S DISEASE
     Route: 042
     Dates: start: 20050728, end: 20060609
  4. MESALAMINE [Concomitant]
     Route: 048
  5. INFLIXIMAB, RECOMBINANT [Suspect]
     Route: 042
     Dates: start: 20091006, end: 20091117
  6. INFLIXIMAB, RECOMBINANT [Suspect]
     Route: 042
     Dates: start: 20110514, end: 20110624
  7. HUMIRA [Concomitant]
     Dates: start: 20110810
  8. ANTIBIOTICS [Concomitant]
     Indication: INFLAMMATORY BOWEL DISEASE
  9. PERIACTIN [Concomitant]

REACTIONS (1)
  - CROHN'S DISEASE [None]
